FAERS Safety Report 9423327 (Version 2)
Quarter: 2013Q3

REPORT INFORMATION
  Report Type: Report from Study
  Country: US (occurrence: US)
  Receive Date: 20130726
  Receipt Date: 20130905
  Transmission Date: 20140515
  Serious: Yes (Hospitalization)
  Sender: FDA-Public Use
  Company Number: US-ABBOTT-13P-163-1123212-00

PATIENT
  Sex: Male
  Weight: 69.01 kg

DRUGS (12)
  1. HUMIRA [Suspect]
     Indication: ANKYLOSING SPONDYLITIS
     Dates: start: 2007, end: 201202
  2. HUMIRA [Suspect]
  3. LISINOPRIL/HCTZ [Concomitant]
     Indication: HYPERTENSION
     Dosage: 20/25 MG DAILY
  4. AMITRIPTYLINE [Concomitant]
     Indication: INSOMNIA
     Dosage: AT HOUR OF SLEEP
  5. TEMAZEPAM [Concomitant]
     Indication: INSOMNIA
     Dosage: AT HOUR OF SLEEP
  6. MULTIPLE VITAMIN [Concomitant]
     Indication: PRODUCT USED FOR UNKNOWN INDICATION
     Dosage: DAILY
  7. CALCIUM [Concomitant]
     Indication: PRODUCT USED FOR UNKNOWN INDICATION
     Dosage: 600 MG DAILY
  8. TYLENOL [Concomitant]
     Indication: PRODUCT USED FOR UNKNOWN INDICATION
  9. CLONIDINE [Concomitant]
     Indication: BLOOD PRESSURE INCREASED
  10. METOPROLOL [Concomitant]
     Indication: HYPERTENSION
  11. UNKNOWN BLOOD PRESSURE MEDICATION [Concomitant]
     Indication: HYPERTENSION
  12. ALEVE [Concomitant]
     Indication: PRODUCT USED FOR UNKNOWN INDICATION

REACTIONS (10)
  - Clostridium difficile infection [Recovered/Resolved]
  - Sinusitis [Unknown]
  - Blood cholesterol increased [Unknown]
  - High density lipoprotein increased [Unknown]
  - Diarrhoea [Recovered/Resolved]
  - Gastroenteritis viral [Unknown]
  - Blood pressure increased [Unknown]
  - Iritis [Recovered/Resolved]
  - Dysbacteriosis [Unknown]
  - Hot flush [Not Recovered/Not Resolved]
